FAERS Safety Report 8561194-X (Version None)
Quarter: 2012Q3

REPORT INFORMATION
  Report Type: 
  Country: None (occurrence: None)
  Receive Date: 20120723
  Receipt Date: 20120709
  Transmission Date: 20120928
  Serious: Yes (Hospitalization)
  Sender: FDA-Public Use
  Company Number: TCI2012A02911

PATIENT
  Age: 69 Year
  Sex: Male

DRUGS (4)
  1. ACTOS [Suspect]
     Indication: TYPE 2 DIABETES MELLITUS
     Dosage: 15 MG (15 MG, 1 D) PER ORAL
     Route: 048
     Dates: start: 20080602, end: 20090718
  2. SULFONAMIDES, UREA DDERIVATIVES [Concomitant]
  3. PLETAL [Concomitant]
  4. HMG COA REDUCTASE INHIBITORS [Concomitant]

REACTIONS (4)
  - HYPERTENSION [None]
  - CHEST X-RAY ABNORMAL [None]
  - BUNDLE BRANCH BLOCK RIGHT [None]
  - ACUTE MYOCARDIAL INFARCTION [None]
